FAERS Safety Report 5850703-7 (Version None)
Quarter: 2008Q3

REPORT INFORMATION
  Report Type: 
  Country: None (occurrence: None)
  Receive Date: 20080820
  Receipt Date: 20080818
  Transmission Date: 20090109
  Serious: Yes (Hospitalization)
  Sender: FDA-Public Use
  Company Number: US-BRISTOL-MYERS SQUIBB COMPANY-14306096

PATIENT
  Age: 28 Year
  Sex: Female

DRUGS (4)
  1. ERBITUX [Suspect]
     Indication: COLORECTAL CANCER METASTATIC
     Route: 042
     Dates: start: 20080101
  2. METHADONE HCL [Concomitant]
  3. AVASTIN [Concomitant]
  4. BENADRYL [Concomitant]
     Indication: PREMEDICATION
     Route: 042

REACTIONS (1)
  - HYPOGLYCAEMIA [None]
